FAERS Safety Report 23587423 (Version 2)
Quarter: 2024Q1

REPORT INFORMATION
  Report Type: Spontaneous
  Country: CN (occurrence: CN)
  Receive Date: 20240301
  Receipt Date: 20240305
  Transmission Date: 20240409
  Serious: Yes (Other)
  Sender: FDA-Public Use
  Company Number: CN-PFIZER INC-PV202400028384

PATIENT
  Age: 27 Year
  Sex: Female
  Weight: 80 kg

DRUGS (3)
  1. CARBOPROST TROMETHAMINE [Suspect]
     Active Substance: CARBOPROST TROMETHAMINE
     Indication: Postpartum haemorrhage
     Dosage: 250 UG, 1X/DAY
     Route: 030
     Dates: start: 20240130, end: 20240130
  2. CARBOPROST TROMETHAMINE [Suspect]
     Active Substance: CARBOPROST TROMETHAMINE
     Indication: Uterine hypotonus
  3. OXYTOCIN [Concomitant]
     Active Substance: OXYTOCIN
     Indication: Postpartum haemorrhage
     Dosage: 20 IU, 1X/DAY
     Route: 041
     Dates: start: 20240130, end: 20240130

REACTIONS (2)
  - Vomiting [Recovering/Resolving]
  - Feeding disorder [Unknown]

NARRATIVE: CASE EVENT DATE: 20240130
